FAERS Safety Report 7379888-0 (Version None)
Quarter: 2011Q1

REPORT INFORMATION
  Report Type: 
  Country: None (occurrence: None)
  Receive Date: 20110329
  Receipt Date: 20110318
  Transmission Date: 20110831
  Serious: Yes (Life-Threatening)
  Sender: FDA-Public Use
  Company Number: BR-JNJFOC-20110208496

PATIENT
  Sex: Male
  Weight: 103 kg

DRUGS (1)
  1. STELARA [Suspect]
     Indication: PSORIASIS
     Route: 058

REACTIONS (1)
  - ACUTE MYOCARDIAL INFARCTION [None]
